FAERS Safety Report 5258680-7 (Version None)
Quarter: 2007Q1

REPORT INFORMATION
  Report Type: 
  Country: None (occurrence: None)
  Receive Date: 20070305
  Receipt Date: 20070227
  Transmission Date: 20070707
  Serious: Yes (Hospitalization)
  Sender: FDA-Public Use
  Company Number: 2007SP003696

PATIENT
  Sex: Female

DRUGS (5)
  1. TEMOZOLOMIDE (S-P) (TEMOZOLOMIDE) [Suspect]
     Indication: GLIOBLASTOMA
     Dosage: PO
     Route: 048
     Dates: start: 20061101, end: 20061208
  2. COTRIMOXAZOLE (BACTRIM /00086101/) [Suspect]
     Indication: PNEUMOCYSTIS JIROVECI PNEUMONIA
     Dosage: 960 MG;PO
     Route: 048
     Dates: start: 20061101, end: 20061201
  3. COTRIMOXAZOLE (BACTRIM /00086101/) [Suspect]
     Indication: PROPHYLAXIS
     Dosage: 960 MG;PO
     Route: 048
     Dates: start: 20061101, end: 20061201
  4. DEXAMETHASONE (CON.) [Concomitant]
  5. DOMPERIDONE (CON.) [Concomitant]

REACTIONS (5)
  - BLOOD BILIRUBIN INCREASED [None]
  - HEPATIC FUNCTION ABNORMAL [None]
  - MUCOSAL INFLAMMATION [None]
  - RASH [None]
  - TRANSAMINASES INCREASED [None]
